FAERS Safety Report 9605251 (Version 3)
Quarter: 2014Q2

REPORT INFORMATION
  Report Type: Report from Study
  Country: FR (occurrence: FR)
  Receive Date: 20131008
  Receipt Date: 20140408
  Transmission Date: 20141212
  Serious: Yes (Hospitalization)
  Sender: FDA-Public Use
  Company Number: FR-GLAXOSMITHKLINE-B0873754A

PATIENT
  Age: 60 Year
  Sex: Male
  Weight: 50 kg

DRUGS (5)
  1. OFATUMUMAB [Suspect]
     Indication: CHRONIC LYMPHOCYTIC LEUKAEMIA
     Route: 042
     Dates: start: 20121204, end: 20130115
  2. METHYLPREDNISOLONE [Suspect]
     Indication: CHRONIC LYMPHOCYTIC LEUKAEMIA
     Route: 042
     Dates: start: 20121204, end: 20130117
  3. BENDAMUSTINE [Suspect]
     Indication: CHRONIC LYMPHOCYTIC LEUKAEMIA
     Route: 042
     Dates: start: 20121213, end: 20130117
  4. ZELITREX [Suspect]
     Dosage: 1TAB PER DAY
  5. TRIMETHOPRIM + SULFAMETHOXAZOLE [Suspect]

REACTIONS (3)
  - Lung infection [Recovering/Resolving]
  - General physical health deterioration [Not Recovered/Not Resolved]
  - Colitis [Unknown]
